FAERS Safety Report 8799426 (Version 3)
Quarter: 2012Q4

REPORT INFORMATION
  Report Type: 
  Country: US (occurrence: US)
  Receive Date: 20120920
  Receipt Date: 20121026
  Transmission Date: 20130627
  Serious: Yes (Other)
  Sender: FDA-Public Use
  Company Number: US-ALLERGAN-1212650US

PATIENT
  Age: 53 Year
  Sex: Female

DRUGS (4)
  1. LATISSE 0.03% [Suspect]
     Indication: GROWTH OF EYELASHES
     Dosage: 1 Gtt upper eyelids qhs
     Route: 061
     Dates: start: 20120904, end: 20120905
  2. CALCITROL [Concomitant]
     Indication: DRUG USE FOR UNKNOWN INDICATION
  3. CHOLESTEROL MEDICATION NOS [Concomitant]
     Indication: DRUG USE FOR UNKNOWN INDICATION
  4. THYROID MEDICATION NOS [Concomitant]
     Indication: DRUG USE FOR UNKNOWN INDICATION

REACTIONS (10)
  - Visual acuity reduced [Not Recovered/Not Resolved]
  - Visual acuity reduced [Not Recovered/Not Resolved]
  - Intraocular pressure decreased [Unknown]
  - Visual impairment [Not Recovered/Not Resolved]
  - Ocular icterus [Recovering/Resolving]
  - Foreign body sensation in eyes [Recovering/Resolving]
  - Ocular discomfort [Recovering/Resolving]
  - Scleral hyperaemia [Recovering/Resolving]
  - Vision blurred [Recovering/Resolving]
  - Eye pruritus [Recovering/Resolving]
